FAERS Safety Report 4479428-X (Version None)
Quarter: 2004Q4

REPORT INFORMATION
  Report Type: 
  Country: None (occurrence: None)
  Receive Date: 20041015
  Receipt Date: 20041005
  Transmission Date: 20050328
  Serious: Yes (Other)
  Sender: FDA-Public Use
  Company Number: 2004237437BR

PATIENT
  Age: 35 Year
  Sex: Female

DRUGS (1)
  1. DEPO-PROVERA [Suspect]
     Indication: MENORRHAGIA
     Dosage: 150 MG/3 MONTHS, FIRST INJECT.,
     Dates: start: 20040708, end: 20040708

REACTIONS (4)
  - ANAEMIA [None]
  - DYSMENORRHOEA [None]
  - PELVIC INFECTION [None]
  - UTERINE HAEMORRHAGE [None]
